FAERS Safety Report 7107101-8 (Version None)
Quarter: 2010Q4

REPORT INFORMATION
  Report Type: 
  Country: None (occurrence: None)
  Receive Date: 20101116
  Receipt Date: 20101006
  Transmission Date: 20110411
  Serious: No
  Sender: FDA-Public Use
  Company Number: US-ABBOTT-10P-163-0676050-00

PATIENT
  Sex: Female
  Weight: 75.818 kg

DRUGS (3)
  1. SIMCOR [Suspect]
     Indication: HYPERLIPIDAEMIA
     Dosage: DAILY AT BEDTIME
     Dates: start: 20100901
  2. GLUCOPHAGE [Concomitant]
     Indication: PRODUCT USED FOR UNKNOWN INDICATION
  3. ZOLOFT [Concomitant]
     Indication: PRODUCT USED FOR UNKNOWN INDICATION

REACTIONS (2)
  - BACK PAIN [None]
  - MUSCLE SPASMS [None]
